FAERS Safety Report 7469801-X (Version None)
Quarter: 2011Q2

REPORT INFORMATION
  Report Type: 
  Country: None (occurrence: None)
  Receive Date: 20110510
  Receipt Date: 20110502
  Transmission Date: 20111010
  Serious: Yes (Other)
  Sender: FDA-Public Use
  Company Number: US-US-EMD SERONO, INC.-7032236

PATIENT
  Sex: Female

DRUGS (3)
  1. REBIF [Suspect]
     Indication: MULTIPLE SCLEROSIS
     Route: 058
     Dates: start: 20101013
  2. REBIF [Suspect]
     Route: 058
     Dates: start: 20100101
  3. REBIF [Suspect]

REACTIONS (6)
  - MUSCLE SPASMS [None]
  - ADRENAL MASS [None]
  - HEADACHE [None]
  - BAND SENSATION [None]
  - NAUSEA [None]
  - LIVER FUNCTION TEST ABNORMAL [None]
